FAERS Safety Report 7463826-6 (Version None)
Quarter: 2011Q2

REPORT INFORMATION
  Report Type: 
  Country: None (occurrence: None)
  Receive Date: 20110428
  Receipt Date: 20110414
  Transmission Date: 20111010
  Serious: Yes (Other)
  Sender: FDA-Public Use
  Company Number: 2011040003

PATIENT
  Age: 24 Year
  Sex: Female
  Weight: 80 kg

DRUGS (1)
  1. AZELASTINE HCL [Suspect]
     Indication: EYE ALLERGY
     Dosage: 1 DOSAGE FORMS (1 DOSAGE FORMS, 1 IN D), OPHTHALMIC
     Route: 047
     Dates: start: 20110323, end: 20110323

REACTIONS (7)
  - DYSGEUSIA [None]
  - THROAT TIGHTNESS [None]
  - OROPHARYNGEAL SWELLING [None]
  - PARAESTHESIA [None]
  - PYREXIA [None]
  - DYSPNOEA [None]
  - PHARYNGEAL DISORDER [None]
